FAERS Safety Report 13931550 (Version 2)
Quarter: 2017Q3

REPORT INFORMATION
  Report Type: Report from Study
  Country: GB (occurrence: GB)
  Receive Date: 20170904
  Receipt Date: 20170906
  Transmission Date: 20171127
  Serious: Yes (Hospitalization)
  Sender: FDA-Public Use
  Company Number: GB-ASTRAZENECA-2017SE88838

PATIENT
  Age: 16480 Day
  Sex: Female

DRUGS (4)
  1. AZD2281 [Suspect]
     Active Substance: OLAPARIB
     Indication: BREAST CANCER
     Dosage: FOR 12 DAYS, EVERY 3 WEEKS
     Route: 048
     Dates: start: 20170331, end: 20170531
  2. CARBOPLATIN. [Suspect]
     Active Substance: CARBOPLATIN
     Indication: BREAST CANCER
     Dosage: AUC 5 ON DAY 1 EVERY 3 WEEKS
     Route: 042
     Dates: start: 20170331, end: 20170531
  3. PACLITAXEL. [Suspect]
     Active Substance: PACLITAXEL
     Indication: BREAST CANCER
     Dosage: 80MG/M2, ON DAY 1,8 + 15 EVERY 3 WEEKS
     Route: 042
     Dates: start: 20170331, end: 20170531
  4. G-CSF [Suspect]
     Active Substance: GRANULOCYTE COLONY-STIMULATING FACTOR NOS
     Indication: BREAST CANCER
     Route: 065

REACTIONS (1)
  - Lower respiratory tract infection [Unknown]

NARRATIVE: CASE EVENT DATE: 20170804
